FAERS Safety Report 8457395-1 (Version None)
Quarter: 2012Q2

REPORT INFORMATION
  Report Type: 
  Country: None (occurrence: None)
  Receive Date: 20120621
  Receipt Date: 20120613
  Transmission Date: 20120825
  Serious: Yes (Hospitalization)
  Sender: FDA-Public Use
  Company Number: GB-B.I. PHARMACEUTICALS,INC./RIDGEFIELD-2012-UK-00745UK

PATIENT
  Age: 28 Year
  Sex: Female
  Weight: 54.2 kg

DRUGS (4)
  1. TRUVADA [Concomitant]
     Indication: HIV INFECTION
     Route: 048
     Dates: start: 20120402
  2. VIRAMUNE [Suspect]
     Indication: HIV INFECTION
     Dosage: 200 MG
     Route: 048
     Dates: start: 20120402, end: 20120417
  3. KALETRA [Concomitant]
     Indication: HIV INFECTION
     Dosage: 2 TABS
     Route: 048
     Dates: start: 20120417
  4. CYCLIZINE [Concomitant]
     Indication: PROPHYLAXIS OF NAUSEA AND VOMITING
     Dosage: PRN ,50MG UP TO TDS
     Route: 048
     Dates: start: 20120402, end: 20120417

REACTIONS (8)
  - MYALGIA [None]
  - RASH [None]
  - CD4 LYMPHOCYTES DECREASED [None]
  - PYREXIA [None]
  - HYPERSENSITIVITY [None]
  - HEPATIC ENZYME INCREASED [None]
  - CONSTIPATION [None]
  - FATIGUE [None]
